FAERS Safety Report 7745850-9 (Version None)
Quarter: 2011Q3

REPORT INFORMATION
  Report Type: 
  Country: None (occurrence: None)
  Receive Date: 20110825
  Receipt Date: 20110719
  Transmission Date: 20111222
  Serious: No
  Sender: FDA-Public Use
  Company Number: 332324

PATIENT
  Age: 65 Year
  Sex: Female

DRUGS (2)
  1. VICTOZA [Suspect]
     Indication: TYPE 2 DIABETES MELLITUS
     Dosage: SUBCUTANEOUS
     Route: 058
  2. HYZAAR [Concomitant]

REACTIONS (7)
  - NAUSEA [None]
  - HEADACHE [None]
  - ANXIETY [None]
  - INSOMNIA [None]
  - BLOOD PRESSURE INCREASED [None]
  - CONFUSIONAL STATE [None]
  - DRUG DOSE OMISSION [None]
